FAERS Safety Report 4687808-2 (Version None)
Quarter: 2005Q2

REPORT INFORMATION
  Report Type: 
  Country: None (occurrence: None)
  Receive Date: 20050608
  Receipt Date: 20050608
  Transmission Date: 20051028
  Serious: No
  Sender: FDA-Public Use
  Company Number: None

PATIENT
  Sex: Male
  Weight: 111.5849 kg

DRUGS (1)
  1. FENTANYL [Suspect]
     Indication: CYSTITIS INTERSTITIAL
     Dosage: 300UGM Q 48 HOURS

REACTIONS (2)
  - PRURITUS [None]
  - RASH [None]
